FAERS Safety Report 7510363-6 (Version None)
Quarter: 2011Q2

REPORT INFORMATION
  Report Type: 
  Country: None (occurrence: None)
  Receive Date: 20110527
  Receipt Date: 20110517
  Transmission Date: 20111010
  Serious: Yes (Hospitalization, Other)
  Sender: FDA-Public Use
  Company Number: BE-ABBOTT-11P-013-0727407-00

PATIENT
  Sex: Female
  Weight: 41 kg

DRUGS (14)
  1. IMODIUM [Concomitant]
     Indication: DIARRHOEA
     Dates: start: 20010223
  2. CO-BISOPROLOL [Concomitant]
     Indication: HYPERTENSION
     Dosage: 5/12.5 MG
     Dates: start: 20100301
  3. MEDROL [Concomitant]
     Indication: CROHN'S DISEASE
     Dates: start: 20100329, end: 20100401
  4. AZATHIOPRINE [Concomitant]
     Indication: CROHN'S DISEASE
  5. AZATHIOPRINE [Concomitant]
     Dates: start: 20110105, end: 20110204
  6. AZATHIOPRINE [Concomitant]
     Dates: start: 20110226
  7. ALPRAZOLAM [Concomitant]
     Indication: ANXIETY
     Dates: start: 20100501
  8. AZATHIOPRINE [Concomitant]
     Dates: start: 20100329, end: 20101221
  9. VENOFER [Concomitant]
     Indication: IRON DEFICIENCY
     Dates: start: 20101215, end: 20101215
  10. AVELOX [Concomitant]
     Indication: BRONCHITIS
     Dates: start: 20101101
  11. IBUPROFEN [Concomitant]
     Indication: HEADACHE
     Dates: start: 20091201
  12. REMICADE [Concomitant]
     Indication: CROHN'S DISEASE
     Dates: start: 20101215, end: 20101215
  13. HUMIRA [Suspect]
     Indication: CROHN'S DISEASE
     Route: 058
     Dates: start: 20090925, end: 20100315
  14. ENTOCORT EC [Concomitant]
     Indication: CROHN'S DISEASE
     Dates: start: 20101130, end: 20101221

REACTIONS (8)
  - INTESTINAL OBSTRUCTION [None]
  - INTESTINAL PERFORATION [None]
  - COLONIC OBSTRUCTION [None]
  - SMALL INTESTINE CARCINOMA [None]
  - LARGE INTESTINE PERFORATION [None]
  - ABSCESS INTESTINAL [None]
  - ABDOMINAL ABSCESS [None]
  - COLON CANCER [None]
